APPROVED DRUG PRODUCT: FLAXEDIL
Active Ingredient: GALLAMINE TRIETHIODIDE
Strength: 100MG/ML
Dosage Form/Route: INJECTABLE;INJECTION
Application: N007842 | Product #002
Applicant: DAVIS AND GECK DIV AMERICAN CYANAMID CO
Approved: Approved Prior to Jan 1, 1982 | RLD: No | RS: No | Type: DISCN